FAERS Safety Report 12262964 (Version 1)
Quarter: 2016Q2

REPORT INFORMATION
  Report Type: Spontaneous
  Country: US (occurrence: None)
  Receive Date: 20160412
  Receipt Date: 20160412
  Transmission Date: 20160815
  Serious: Yes (Disabling)
  Sender: FDA-Public Use
  Company Number: None

PATIENT
  Age: 58 Year
  Sex: Female

DRUGS (4)
  1. DAILY MULTIVITAMIN [Concomitant]
     Active Substance: VITAMINS
  2. ACYCLOVIR. [Suspect]
     Active Substance: ACYCLOVIR
     Indication: HERPES VIRUS INFECTION
     Route: 048
     Dates: start: 20160322, end: 20160331
  3. FISH OIL [Concomitant]
     Active Substance: FISH OIL
  4. CALCIUM SUPPLEMENTS [Concomitant]
     Active Substance: CALCIUM

REACTIONS (5)
  - Proctalgia [None]
  - Pelvic pain [None]
  - Abdominal pain upper [None]
  - Sensory disturbance [None]
  - Headache [None]

NARRATIVE: CASE EVENT DATE: 20160324
